FAERS Safety Report 21805463 (Version 1)
Quarter: 2023Q1

REPORT INFORMATION
  Report Type: Spontaneous
  Country: CN (occurrence: CN)
  Receive Date: 20230102
  Receipt Date: 20230102
  Transmission Date: 20230418
  Serious: Yes (Death, Life-Threatening, Hospitalization, Other)
  Sender: FDA-Public Use
  Company Number: CN-MLMSERVICE-2022122037466591

PATIENT
  Age: 51 Year
  Sex: Male

DRUGS (3)
  1. CISPLATIN [Suspect]
     Active Substance: CISPLATIN
     Indication: Lung adenocarcinoma
     Dosage: CUMULATIVE DOSE: 6 CYCLICAL
     Dates: start: 201712
  2. GEFITINIB [Suspect]
     Active Substance: GEFITINIB
     Indication: Lung adenocarcinoma
     Route: 048
     Dates: start: 2018
  3. PEMETREXED [Suspect]
     Active Substance: PEMETREXED
     Indication: Lung adenocarcinoma
     Dosage: CUMULATIVE DOSE: 6 CYCLICAL
     Dates: start: 201712

REACTIONS (4)
  - Cerebral haemorrhage [Fatal]
  - Coma [Fatal]
  - Acute promyelocytic leukaemia [Fatal]
  - Subarachnoid haemorrhage [Fatal]

NARRATIVE: CASE EVENT DATE: 20190601
